FAERS Safety Report 16910084 (Version 1)
Quarter: 2019Q4

REPORT INFORMATION
  Report Type: Spontaneous
  Country: US (occurrence: US)
  Receive Date: 20191011
  Receipt Date: 20191011
  Transmission Date: 20200122
  Serious: Yes (Death, Other)
  Sender: FDA-Public Use
  Company Number: US-JNJFOC-20191015138

PATIENT
  Sex: Female

DRUGS (1)
  1. IMBRUVICA [Suspect]
     Active Substance: IBRUTINIB
     Indication: CHRONIC LYMPHOCYTIC LEUKAEMIA
     Dosage: UNK
     Route: 065
     Dates: start: 20190427

REACTIONS (7)
  - Splenomegaly [Fatal]
  - Cardiac dysfunction [Fatal]
  - Heart rate irregular [Unknown]
  - Contusion [Unknown]
  - Pleural effusion [Fatal]
  - Renal failure [Fatal]
  - Platelet count decreased [Unknown]
